FAERS Safety Report 8248134-8 (Version None)
Quarter: 2012Q1

REPORT INFORMATION
  Report Type: 
  Country: None (occurrence: None)
  Receive Date: 20120330
  Receipt Date: 20120323
  Transmission Date: 20120608
  Serious: Yes (Other)
  Sender: FDA-Public Use
  Company Number: JP-VERTEX PHARMACEUTICALS INC.-AE-2012-004506

PATIENT
  Age: 55 Year
  Sex: Male

DRUGS (11)
  1. RIBAVIRIN [Concomitant]
     Route: 048
     Dates: start: 20120302, end: 20120306
  2. TELAVIC (TELAPREVIR) [Suspect]
     Indication: HEPATITIS C
     Route: 048
     Dates: start: 20120118, end: 20120214
  3. RIBAVIRIN [Concomitant]
     Route: 048
     Dates: start: 20120215, end: 20120301
  4. VOLTAREN [Concomitant]
     Route: 054
     Dates: start: 20120118
  5. LIVACT [Concomitant]
     Route: 048
     Dates: start: 20120307
  6. TSUMURA SHAKUYAKUKANZOUTOU [Concomitant]
     Route: 048
     Dates: start: 20120307
  7. TELAVIC (TELAPREVIR) [Suspect]
     Dates: start: 20120215, end: 20120319
  8. RIBAVIRIN [Concomitant]
     Route: 048
     Dates: start: 20120118, end: 20120214
  9. PEGINTERFERON ALFA-2B [Concomitant]
     Indication: HEPATITIS C
     Route: 051
     Dates: start: 20120118
  10. RIBAVIRIN [Concomitant]
     Route: 048
     Dates: start: 20120307, end: 20120319
  11. EBASTINE [Concomitant]
     Route: 048
     Dates: start: 20120118, end: 20120206

REACTIONS (1)
  - ERYTHEMA MULTIFORME [None]
